FAERS Safety Report 11170289 (Version 1)
Quarter: 2015Q2

REPORT INFORMATION
  Report Type: Spontaneous
  Country: FR (occurrence: FR)
  Receive Date: 20150608
  Receipt Date: 20150608
  Transmission Date: 20150821
  Serious: Yes (Other)
  Sender: FDA-Public Use
  Company Number: FR-ACCORD-031320

PATIENT
  Age: 27 Year
  Sex: Male

DRUGS (9)
  1. TACROLIMUS. [Suspect]
     Active Substance: TACROLIMUS
     Indication: IMMUNOSUPPRESSION
  2. TACROLIMUS. [Suspect]
     Active Substance: TACROLIMUS
     Indication: IMMUNOSUPPRESSION
  3. VINCRISTINE [Suspect]
     Active Substance: VINCRISTINE
     Indication: B-CELL LYMPHOMA
     Dosage: EIGHT ROUNDS OF R-CHOP
     Dates: start: 20110225, end: 20110816
  4. CYCLOPHOSPHAMIDE/CYCLOPHOSPHAMIDE MONOHYDRATE [Suspect]
     Active Substance: CYCLOPHOSPHAMIDE
     Indication: B-CELL LYMPHOMA
     Dosage: EIGHT ROUNDS OF R-CHOP
     Dates: start: 20110225, end: 20110816
  5. SIROLIMUS. [Suspect]
     Active Substance: SIROLIMUS
     Indication: IMMUNOSUPPRESSION
     Dates: start: 201201
  6. MYCOPHENOLIC ACID. [Suspect]
     Active Substance: MYCOPHENOLIC ACID
     Indication: IMMUNOSUPPRESSION
     Dosage: ALSO RECEIVED MMF 500 MG AND THEN 1000 MG/DAY
  7. PREDNISONE. [Suspect]
     Active Substance: PREDNISONE
     Indication: B-CELL LYMPHOMA
     Dosage: PREDNISONE 40 MG/M^2 FOR 5 DAYS??EIGHT ROUNDS OF R-CHOP
     Dates: start: 20110225, end: 20110816
  8. RITUXIMAB [Suspect]
     Active Substance: RITUXIMAB
     Indication: B-CELL LYMPHOMA
     Dosage: EIGHT ROUNDS OF R-CHOP
     Dates: start: 20110225, end: 20110816
  9. DOXORUBICIN [Suspect]
     Active Substance: DOXORUBICIN
     Indication: B-CELL LYMPHOMA
     Dosage: EIGHT ROUNDS OF R-CHOP
     Dates: start: 20110225, end: 20110816

REACTIONS (5)
  - Herpes simplex [Unknown]
  - B-cell lymphoma [Recovered/Resolved]
  - Mouth ulceration [Unknown]
  - Smooth muscle cell neoplasm [Not Recovered/Not Resolved]
  - Epstein-Barr virus infection [Unknown]

NARRATIVE: CASE EVENT DATE: 201004
